FAERS Safety Report 11029563 (Version 1)
Quarter: 2015Q2

REPORT INFORMATION
  Report Type: Spontaneous
  Country: US (occurrence: None)
  Receive Date: 20150413
  Receipt Date: 20150413
  Transmission Date: 20150821
  Serious: Yes (Life-Threatening, Hospitalization)
  Sender: FDA-Public Use
  Company Number: None

PATIENT
  Age: 52 Year
  Sex: Male
  Weight: 81.19 kg

DRUGS (6)
  1. CLINDAMYCIN [Suspect]
     Active Substance: CLINDAMYCIN\CLINDAMYCIN PHOSPHATE
     Indication: TOOTH INFECTION
     Dosage: 21 PILLS TAKEN BY MOUTH
     Route: 048
     Dates: start: 20150210, end: 20150217
  2. AMBIEN [Concomitant]
     Active Substance: ZOLPIDEM TARTRATE
  3. IMPRAMINE [Concomitant]
  4. ISTOMY [Concomitant]
  5. ATIVAN [Concomitant]
     Active Substance: LORAZEPAM
  6. NORCO [Concomitant]
     Active Substance: ACETAMINOPHEN\HYDROCODONE BITARTRATE

REACTIONS (5)
  - Diarrhoea [None]
  - Pyrexia [None]
  - Clostridium difficile infection [None]
  - Sepsis [None]
  - Malaise [None]

NARRATIVE: CASE EVENT DATE: 20150303
